FAERS Safety Report 12375376 (Version 1)
Quarter: 2016Q2

REPORT INFORMATION
  Report Type: Spontaneous
  Country: US (occurrence: None)
  Receive Date: 20160516
  Receipt Date: 20160516
  Transmission Date: 20160815
  Serious: Yes (Other)
  Sender: FDA-Public Use
  Company Number: None

PATIENT
  Sex: Male

DRUGS (1)
  1. NEXAVAR [Suspect]
     Active Substance: SORAFENIB
     Indication: HEPATOCELLULAR CARCINOMA
     Dosage: 200MG 2 TABLETS TWICA A DAY PO
     Route: 048
     Dates: start: 20160204

REACTIONS (3)
  - Liver disorder [None]
  - Jaundice [None]
  - Adverse drug reaction [None]
